FAERS Safety Report 8722658 (Version 3)
Quarter: 2013Q1

REPORT INFORMATION
  Report Type: Report from Study
  Country: JP (occurrence: JP)
  Receive Date: 20120814
  Receipt Date: 20130123
  Transmission Date: 20140127
  Serious: Yes (Other)
  Sender: FDA-Public Use
  Company Number: JP-009507513-1208JPN005599

PATIENT
  Age: 62 Year
  Sex: Male
  Weight: 59 kg

DRUGS (12)
  1. PEGINTRON [Suspect]
     Indication: CHRONIC HEPATITIS C
     Dosage: 1.5 MICROGRAM PER KILOGRAM, QW
     Route: 058
     Dates: start: 20120410, end: 20120924
  2. REBETOL [Suspect]
     Indication: CHRONIC HEPATITIS C
     Dosage: 600 MG, QD
     Route: 048
     Dates: start: 20120410, end: 20120501
  3. REBETOL [Suspect]
     Dosage: 200 MG, QD
     Route: 048
     Dates: start: 20120502, end: 20120924
  4. TELAVIC [Suspect]
     Indication: CHRONIC HEPATITIS C
     Dosage: 2250 MG, QD
     Route: 048
     Dates: start: 20120410, end: 20120603
  5. TELAVIC [Suspect]
     Dosage: 1500 MG, QD
     Route: 048
     Dates: start: 20120604, end: 20120703
  6. BASEN [Concomitant]
     Indication: DIABETES MELLITUS
     Dosage: 0.6 MG, QD
     Route: 048
  7. JANUVIA [Concomitant]
     Indication: DIABETES MELLITUS
     Dosage: 25 MG, QD
     Route: 048
  8. HUMALOG MIX [Concomitant]
     Indication: DIABETES MELLITUS
     Dosage: 23 DF, QD
     Route: 058
  9. HUMALOG NPL [Concomitant]
     Indication: DIABETES MELLITUS
     Dosage: 4 DF, QD
     Route: 058
  10. PROMAC (POLAPREZINC) [Concomitant]
     Indication: PROPHYLAXIS
     Dosage: 150 MG, QD
     Route: 048
     Dates: start: 20120410
  11. TOUGHMAC E [Concomitant]
     Indication: PROPHYLAXIS
     Dosage: 3 DF, QD
     Route: 048
     Dates: start: 20120410
  12. NEXIUM [Concomitant]
     Indication: PROPHYLAXIS
     Dosage: 20 MG, QD, POR FORMULATION
     Route: 048
     Dates: start: 20120620

REACTIONS (5)
  - Rash [Recovered/Resolved]
  - Pyrexia [None]
  - Hyperuricaemia [None]
  - Anaemia [None]
  - Eczema [None]
